FAERS Safety Report 9499180 (Version 2)
Quarter: 2013Q3

REPORT INFORMATION
  Report Type: Report from Study
  Country: US (occurrence: US)
  Receive Date: 20130905
  Receipt Date: 20130905
  Transmission Date: 20140515
  Serious: Yes (Other)
  Sender: FDA-Public Use
  Company Number: US-ROCHE-1251194

PATIENT
  Age: 64 Year
  Sex: Female

DRUGS (10)
  1. AVASTIN [Suspect]
     Indication: BREAST CANCER
     Route: 065
  2. AVASTIN [Suspect]
     Indication: METASTASES TO LUNG
     Route: 065
  3. AVASTIN [Suspect]
     Indication: BONE NEOPLASM
  4. ONDANSETRON [Concomitant]
     Route: 065
  5. GEMCITABINE [Concomitant]
     Route: 065
  6. GEMCITABINE [Concomitant]
     Route: 042
  7. DEXAMETHASONE [Concomitant]
     Route: 065
  8. DEXAMETHASONE [Concomitant]
     Route: 042
  9. PALONOSETRON [Concomitant]
     Route: 042
  10. CARBOPLATIN [Concomitant]
     Route: 042

REACTIONS (6)
  - Metastases to liver [Unknown]
  - Hypertension [Unknown]
  - Haemoglobin decreased [Unknown]
  - Haematocrit decreased [Unknown]
  - Platelet count decreased [Unknown]
  - Essential hypertension [Unknown]
